FAERS Safety Report 6355573-9 (Version None)
Quarter: 2009Q3

REPORT INFORMATION
  Report Type: 
  Country: None (occurrence: None)
  Receive Date: 20090914
  Receipt Date: 20090905
  Transmission Date: 20100115
  Serious: Yes (Hospitalization)
  Sender: FDA-Public Use
  Company Number: US-AMGEN-KDL363545

PATIENT
  Sex: Male
  Weight: 104.4 kg

DRUGS (1)
  1. PROCRIT [Suspect]
     Indication: ANAEMIA
     Route: 030
     Dates: start: 20070101

REACTIONS (3)
  - ARTERIAL OCCLUSIVE DISEASE [None]
  - INFLUENZA [None]
  - RED BLOOD CELL COUNT ABNORMAL [None]
